APPROVED DRUG PRODUCT: LAMICTAL CD
Active Ingredient: LAMOTRIGINE
Strength: 2MG
Dosage Form/Route: TABLET, FOR SUSPENSION;ORAL
Application: N020764 | Product #004 | TE Code: AB
Applicant: GLAXOSMITHKLINE LLC
Approved: Sep 8, 2000 | RLD: Yes | RS: No | Type: RX